FAERS Safety Report 6158106-5 (Version None)
Quarter: 2009Q2

REPORT INFORMATION
  Report Type: 
  Country: None (occurrence: None)
  Receive Date: 20090417
  Receipt Date: 20090414
  Transmission Date: 20091009
  Serious: Yes (Other)
  Sender: FDA-Public Use
  Company Number: PHEH2009US01728

PATIENT
  Sex: Male
  Weight: 93.424 kg

DRUGS (23)
  1. ZOMETA [Suspect]
     Indication: PROSTATE CANCER METASTATIC
     Dosage: 4 MG, QMO
     Dates: start: 20080401
  2. LUPRON [Concomitant]
     Dosage: 30 MG, Q3MO
  3. TOPROL-XL [Concomitant]
     Dosage: 100 MG, QD
  4. FLECAINIDE ACETATE [Concomitant]
     Dosage: 50 MG TWICE PER DAY
  5. ZYRTEC [Concomitant]
     Dosage: 10 MG, PRN
  6. TRIAMTERENE AND HYDROCHLOROTHIAZID ^HARRIS^ [Concomitant]
     Dosage: 37.5 MG/25 MG PER DAY
  7. WARFARIN SODIUM [Concomitant]
     Dosage: 1 MG, QD
  8. DEXAMETHASONE [Concomitant]
     Dosage: .75 MG, QD
  9. DES [Concomitant]
     Dosage: 1 MG PER DAY 2 WEEKS ON 2 WEEKS OFF
  10. VITAMIN D3 [Concomitant]
     Dosage: 1000 MG, BID
  11. CALCIUM [Concomitant]
     Dosage: 1000 MG, QD
  12. VITAMIN B COMPLEX CAP [Concomitant]
     Dosage: 1 PER DAY
  13. POMEGRANATE EXTRACT [Concomitant]
     Dosage: 500 MG TWO PER DAY
  14. MUSHROOM EXTRACT [Concomitant]
     Dosage: 6 PER DAY
  15. COQ10 [Concomitant]
     Dosage: 100 MG, QD
  16. LOVAZA [Concomitant]
     Dosage: 1000 MG, BID
  17. FLAX OIL [Concomitant]
  18. ZINC [Concomitant]
     Dosage: 50 MG, QD
  19. COPPER [Concomitant]
     Dosage: 2 MG, QD
  20. SELENIUM [Concomitant]
     Dosage: 200 MCG 4 PER DAY
  21. VITAMIN E [Concomitant]
     Dosage: 200 IU, QD
  22. POTASSIUM CHLORIDE [Concomitant]
     Dosage: OTC DOSE ONCE DAILY
  23. ASCORBIC ACID [Concomitant]
     Dosage: 5000 MG, QD

REACTIONS (15)
  - ARTHRALGIA [None]
  - ASPARTATE AMINOTRANSFERASE INCREASED [None]
  - BLOOD ALBUMIN DECREASED [None]
  - BLOOD SODIUM DECREASED [None]
  - HAEMATOCRIT DECREASED [None]
  - HAEMOGLOBIN DECREASED [None]
  - INFLUENZA LIKE ILLNESS [None]
  - JOINT CONTRACTURE [None]
  - JOINT DISLOCATION [None]
  - LYMPHOCYTE PERCENTAGE DECREASED [None]
  - MUSCLE SPASMS [None]
  - MYALGIA [None]
  - NEUTROPHIL COUNT INCREASED [None]
  - NEUTROPHIL PERCENTAGE INCREASED [None]
  - SKIN DISCOLOURATION [None]
